FAERS Safety Report 21584709 (Version 1)
Quarter: 2022Q4

REPORT INFORMATION
  Report Type: Spontaneous
  Country: CN (occurrence: CN)
  Receive Date: 20221111
  Receipt Date: 20221111
  Transmission Date: 20230113
  Serious: Yes (Other)
  Sender: FDA-Public Use
  Company Number: CN-PFIZER INC-PV202200100544

PATIENT
  Age: 5 Year
  Sex: Female
  Weight: 31.5 kg

DRUGS (2)
  1. AZITHROMYCIN [Suspect]
     Active Substance: AZITHROMYCIN
     Indication: Anti-infective therapy
     Dosage: 200 MG, 1X/DAY
     Route: 048
     Dates: start: 20221005
  2. PIPERACILLIN SODIUM [Suspect]
     Active Substance: PIPERACILLIN SODIUM
     Indication: Anti-infective therapy
     Dosage: 2 G, 2X/DAY
     Route: 041
     Dates: start: 20221003

REACTIONS (4)
  - White blood cell count decreased [Recovering/Resolving]
  - Lymphocyte percentage increased [Recovering/Resolving]
  - Platelet count decreased [Unknown]
  - Neutrophil percentage decreased [Recovering/Resolving]

NARRATIVE: CASE EVENT DATE: 20221006
